FAERS Safety Report 8181961-4 (Version None)
Quarter: 2012Q1

REPORT INFORMATION
  Report Type: 
  Country: None (occurrence: None)
  Receive Date: 20120302
  Receipt Date: 20120221
  Transmission Date: 20120608
  Serious: Yes (Other)
  Sender: FDA-Public Use
  Company Number: PHHY2012PL013015

PATIENT

DRUGS (2)
  1. ANGIOTENSIN CONVERTING ENZYME BLOCKERS [Suspect]
  2. CYCLOSPORINE [Suspect]
     Indication: NEPHROTIC SYNDROME

REACTIONS (5)
  - RENAL FAILURE ACUTE [None]
  - VOMITING [None]
  - ANURIA [None]
  - DEHYDRATION [None]
  - DIARRHOEA [None]
